FAERS Safety Report 7810229-8 (Version None)
Quarter: 2011Q4

REPORT INFORMATION
  Report Type: 
  Country: None (occurrence: None)
  Receive Date: 20111012
  Receipt Date: 20111005
  Transmission Date: 20120403
  Serious: Yes (Other)
  Sender: FDA-Public Use
  Company Number: VE-PFIZER INC-2011239904

PATIENT

DRUGS (1)
  1. ZYVOX [Suspect]

REACTIONS (1)
  - PANCREATITIS [None]
